FAERS Safety Report 13779210 (Version 2)
Quarter: 2017Q4

REPORT INFORMATION
  Report Type: Report from Study
  Country: FR (occurrence: FR)
  Receive Date: 20170721
  Receipt Date: 20171009
  Transmission Date: 20180320
  Serious: Yes (Life-Threatening, Hospitalization, Other)
  Sender: FDA-Public Use
  Company Number: FR-SHIRE-FR201715194

PATIENT

DRUGS (22)
  1. PEGASPARGASE [Suspect]
     Active Substance: PEGASPARGASE
     Dosage: UNK
  2. CHLORMADINONE [Concomitant]
     Active Substance: CHLORMADINONE
     Indication: PRODUCT USED FOR UNKNOWN INDICATION
  3. PEGASPARGASE [Suspect]
     Active Substance: PEGASPARGASE
     Indication: ACUTE LYMPHOCYTIC LEUKAEMIA
     Dosage: 4.13 KIU
     Route: 042
     Dates: start: 20170530, end: 20170613
  4. DAUNORUBICIN [Suspect]
     Active Substance: DAUNORUBICIN
     Dosage: 49.8 MG, 1X/DAY:QD
     Route: 042
     Dates: start: 20170609
  5. MORPHINE                           /00036302/ [Concomitant]
     Active Substance: MORPHINE
     Indication: ANALGESIC THERAPY
  6. BACTRIM [Concomitant]
     Active Substance: SULFAMETHOXAZOLE\TRIMETHOPRIM
     Indication: PNEUMOCYSTIS JIROVECII PNEUMONIA
  7. HYDROCORTANCYL                     /00016201/ [Suspect]
     Active Substance: PREDNISONE
     Dosage: 16 MG, UNK
     Route: 037
     Dates: start: 20170531, end: 20170612
  8. AMIKACIN [Concomitant]
     Active Substance: AMIKACIN
     Indication: FEBRILE BONE MARROW APLASIA
  9. NOREPINEPHRINE. [Concomitant]
     Active Substance: NOREPINEPHRINE
     Indication: SEPTIC SHOCK
  10. DOPAMINE [Concomitant]
     Active Substance: DOPAMINE\DOPAMINE HYDROCHLORIDE
     Indication: SEPTIC SHOCK
  11. PANTOPRAZOLE [Concomitant]
     Active Substance: PANTOPRAZOLE
     Indication: PROPHYLAXIS AGAINST GASTROINTESTINAL ULCER
  12. PIPERACILLIN AND TAZOBACTAM [Concomitant]
     Active Substance: PIPERACILLIN SODIUM\TAZOBACTAM SODIUM
     Indication: FEBRILE BONE MARROW APLASIA
  13. VANCOMYCIN [Concomitant]
     Active Substance: VANCOMYCIN
     Indication: FEBRILE BONE MARROW APLASIA
  14. BACTRIM [Concomitant]
     Active Substance: SULFAMETHOXAZOLE\TRIMETHOPRIM
     Indication: PROPHYLAXIS
  15. VINCRISTINE [Suspect]
     Active Substance: VINCRISTINE
     Indication: ACUTE LYMPHOCYTIC LEUKAEMIA
     Dosage: 2 MG, 1X/DAY:QD
     Route: 042
     Dates: start: 20170526, end: 20170616
  16. DAUNORUBICIN [Suspect]
     Active Substance: DAUNORUBICIN
     Indication: ACUTE LYMPHOCYTIC LEUKAEMIA
     Dosage: 50 MG, 1X/DAY:QD
     Route: 042
     Dates: start: 20170526, end: 20170616
  17. CYTARABINE. [Suspect]
     Active Substance: CYTARABINE
     Indication: ACUTE LYMPHOCYTIC LEUKAEMIA
     Dosage: 30 MG, UNK
     Route: 037
     Dates: start: 20170531, end: 20170612
  18. MORPHINE                           /00036302/ [Concomitant]
     Active Substance: MORPHINE
     Indication: MUCOSAL INFLAMMATION
  19. HYDROCORTANCYL                     /00016201/ [Suspect]
     Active Substance: PREDNISONE
     Indication: ACUTE LYMPHOCYTIC LEUKAEMIA
     Dosage: 100 MG, 1X/DAY:QD
     Route: 048
     Dates: start: 20170526
  20. DAUNORUBICIN [Suspect]
     Active Substance: DAUNORUBICIN
     Dosage: 49.8 MG, 1X/DAY:QD
     Route: 042
     Dates: start: 20170616
  21. METHOTREXATE. [Suspect]
     Active Substance: METHOTREXATE
     Indication: ACUTE LYMPHOCYTIC LEUKAEMIA
     Dosage: 15 MG, 1X/DAY:QD
     Route: 037
     Dates: start: 20170516, end: 20170612
  22. ACICLOVIR [Concomitant]
     Active Substance: ACYCLOVIR
     Indication: HERPES SIMPLEX

REACTIONS (7)
  - Hypotension [Recovered/Resolved]
  - Septic shock [Recovered/Resolved]
  - Hyperthermia [Recovered/Resolved]
  - Posterior reversible encephalopathy syndrome [Recovered/Resolved]
  - Febrile bone marrow aplasia [Recovered/Resolved]
  - Pharyngeal inflammation [Recovered/Resolved]
  - Cardiac failure [Recovered/Resolved]

NARRATIVE: CASE EVENT DATE: 20170606
